FAERS Safety Report 8758657 (Version 1)
Quarter: 2012Q4

REPORT INFORMATION
  Report Type: 
  Country: IL (occurrence: IL)
  Receive Date: 20120829
  Receipt Date: 20120829
  Transmission Date: 20130627
  Serious: Yes (Hospitalization, Other)
  Sender: FDA-Public Use
  Company Number: IL-GENZYME-FLUD-1001555

PATIENT
  Age: 85 Year
  Sex: Female
  Weight: 43 kg

DRUGS (9)
  1. FLUDARA [Suspect]
     Indication: CHRONIC LYMPHOCYTIC LEUKAEMIA
     Dosage: 12.5 mg/m2, 3 days of every 28 day cycle
     Route: 042
     Dates: start: 20120312
  2. RITUXIMAB [Suspect]
     Indication: CHRONIC LYMPHOCYTIC LEUKAEMIA
     Dosage: 500 mg/m2, q4w
     Route: 042
     Dates: start: 20120311
  3. CYCLOPHOSPHAMIDE [Suspect]
     Indication: CHRONIC LYMPHOCYTIC LEUKAEMIA
     Dosage: 150 mg/m2, 3 days of every 28- day cycle
     Route: 042
     Dates: start: 20120312
  4. ATENOLOL [Concomitant]
     Indication: PRODUCT USED FOR UNKNOWN INDICATION
     Dosage: 25 mg, UNK
     Route: 065
     Dates: start: 200312
  5. ATENOLOL [Concomitant]
     Dosage: 50 mg, UNK
     Route: 065
     Dates: start: 20120715, end: 20120718
  6. ZOPICLON [Concomitant]
     Indication: PRODUCT USED FOR UNKNOWN INDICATION
     Dosage: 7.5 mg, UNK
     Route: 065
     Dates: start: 200812
  7. FAMOTIDINE [Concomitant]
     Indication: PRODUCT USED FOR UNKNOWN INDICATION
     Dosage: 20 mg, UNK
     Route: 065
     Dates: start: 20120715, end: 20120718
  8. CALCIUM CARBONATE [Concomitant]
     Indication: PRODUCT USED FOR UNKNOWN INDICATION
     Dosage: 600 mg, qd
     Route: 065
     Dates: start: 200211
  9. GASTROGRAFIN [Concomitant]
     Indication: PRODUCT USED FOR UNKNOWN INDICATION
     Dosage: 2000 ml, qd
     Route: 065
     Dates: start: 20120716, end: 20120717

REACTIONS (3)
  - Pancreatic disorder [Unknown]
  - Hyperadrenalism [Unknown]
  - Pyrexia [Recovered/Resolved with Sequelae]
